FAERS Safety Report 6645396-5 (Version None)
Quarter: 2010Q1

REPORT INFORMATION
  Report Type: 
  Country: None (occurrence: None)
  Receive Date: 20100322
  Receipt Date: 20100315
  Transmission Date: 20100710
  Serious: Yes (Hospitalization, Other)
  Sender: FDA-Public Use
  Company Number: US-AMGEN-QUU392846

PATIENT
  Sex: Female

DRUGS (14)
  1. ENBREL [Suspect]
     Indication: RHEUMATOID ARTHRITIS
     Route: 058
     Dates: start: 20061018
  2. ACETAMINOPHEN [Concomitant]
  3. FOSAMAX [Concomitant]
     Route: 048
  4. NORVASC [Concomitant]
     Route: 048
  5. TENORMIN [Concomitant]
     Route: 048
  6. CALTRATE [Concomitant]
     Route: 048
  7. IRON [Concomitant]
  8. LASIX [Concomitant]
     Route: 048
  9. SYNTHROID [Concomitant]
  10. GLUCOPHAGE [Concomitant]
     Route: 048
  11. FISH OIL [Concomitant]
  12. TERAZOSIN HYDROCHLORIDE [Concomitant]
     Route: 048
  13. DIOVAN [Concomitant]
     Route: 048
  14. VITAMIN E [Concomitant]
     Route: 048

REACTIONS (2)
  - ARTHRALGIA [None]
  - HIP ARTHROPLASTY [None]
